FAERS Safety Report 12316154 (Version 3)
Quarter: 2017Q1

REPORT INFORMATION
  Report Type: Report from Study
  Country: JP (occurrence: JP)
  Receive Date: 20160428
  Receipt Date: 20170324
  Transmission Date: 20170428
  Serious: Yes (Hospitalization, Other)
  Sender: FDA-Public Use
  Company Number: JP-BRISTOL-MYERS SQUIBB COMPANY-BMS-2016-030077

PATIENT
  Age: 27 Year
  Sex: Male

DRUGS (1)
  1. NIVOLUMAB [Suspect]
     Active Substance: NIVOLUMAB
     Indication: HODGKIN^S DISEASE
     Dosage: 3 MG/KG, UNK
     Route: 041
     Dates: start: 20160413, end: 20161005

REACTIONS (9)
  - Alanine aminotransferase increased [Recovered/Resolved]
  - Platelet count decreased [Unknown]
  - Product use issue [Unknown]
  - Infusion related reaction [Recovered/Resolved]
  - Encephalitis [Recovered/Resolved]
  - Blood creatine phosphokinase increased [Unknown]
  - Seizure [Recovering/Resolving]
  - Aspartate aminotransferase increased [Recovered/Resolved]
  - Hypothyroidism [Not Recovered/Not Resolved]

NARRATIVE: CASE EVENT DATE: 2016
